FAERS Safety Report 23514827 (Version 1)
Quarter: 2024Q1

REPORT INFORMATION
  Report Type: Spontaneous
  Country: US (occurrence: US)
  Receive Date: 20240212
  Receipt Date: 20240212
  Transmission Date: 20240410
  Serious: No
  Sender: FDA-Public Use
  Company Number: US-JNJFOC-20240223020

PATIENT
  Sex: Female
  Weight: 74.91 kg

DRUGS (10)
  1. OPSUMIT [Suspect]
     Active Substance: MACITENTAN
     Indication: Product used for unknown indication
     Route: 048
  2. TYVASO DPI [Suspect]
     Active Substance: TREPROSTINIL
     Indication: Pulmonary arterial hypertension
     Dosage: TYVASO DPI 16MCG 4 TIMES PER DAY
     Route: 055
  3. TADALAFIL [Suspect]
     Active Substance: TADALAFIL
     Indication: Product used for unknown indication
     Route: 065
  4. TYLENOL [Concomitant]
     Active Substance: ACETAMINOPHEN
  5. IMMUNE SUPPORT [CALCIUM ASCORBATE;COLECALCIFEROL;PYRIDOXINE HYDROCHLOR [Concomitant]
  6. IRON [Concomitant]
     Active Substance: IRON
  7. OMEGA-3 FATTY ACIDS [Concomitant]
     Active Substance: OMEGA-3 FATTY ACIDS
  8. OXYGEN [Concomitant]
     Active Substance: OXYGEN
  9. ERRIN [ERYTHROMYCIN] [Concomitant]
  10. PRILOSEC [Concomitant]
     Active Substance: OMEPRAZOLE MAGNESIUM

REACTIONS (1)
  - Therapy cessation [Unknown]
